FAERS Safety Report 8310781-2 (Version None)
Quarter: 2012Q2

REPORT INFORMATION
  Report Type: 
  Country: None (occurrence: None)
  Receive Date: 20120425
  Receipt Date: 20120417
  Transmission Date: 20120825
  Serious: Yes (Hospitalization)
  Sender: FDA-Public Use
  Company Number: BR-ABBOTT-11P-020-0870142-00

PATIENT
  Sex: Female
  Weight: 53 kg

DRUGS (2)
  1. HUMIRA [Suspect]
  2. HUMIRA [Suspect]
     Indication: RHEUMATOID ARTHRITIS
     Dates: start: 20080204, end: 20110101

REACTIONS (4)
  - PAIN [None]
  - HERPES ZOSTER [None]
  - AUTOIMMUNE THYROIDITIS [None]
  - BLOOD THYROID STIMULATING HORMONE ABNORMAL [None]
